FAERS Safety Report 5584511-1 (Version None)
Quarter: 2008Q1

REPORT INFORMATION
  Report Type: 
  Country: None (occurrence: None)
  Receive Date: 20080108
  Receipt Date: 20071227
  Transmission Date: 20080703
  Serious: No
  Sender: FDA-Public Use
  Company Number: US-ELI_LILLY_AND_COMPANY-US200705000025

PATIENT
  Sex: Female

DRUGS (3)
  1. HUMALOG [Suspect]
     Dosage: UNK, UNKNOWN
     Dates: start: 20020101
  2. HUMALOG [Suspect]
     Dosage: 15 U, UNKNOWN
     Dates: start: 20020101
  3. HUMALOG [Suspect]
     Dosage: UNK, UNK

REACTIONS (1)
  - BLOOD GLUCOSE INCREASED [None]
